FAERS Safety Report 16851591 (Version 1)
Quarter: 2019Q3

REPORT INFORMATION
  Report Type: Spontaneous
  Country: US (occurrence: US)
  Receive Date: 20190925
  Receipt Date: 20190925
  Transmission Date: 20191005
  Serious: No
  Sender: FDA-Public Use
  Company Number: US-GLAXOSMITHKLINE-US2019170751

PATIENT
  Sex: Female

DRUGS (1)
  1. FLONASE SENSIMIST ALLERGY RELIEF [Suspect]
     Active Substance: FLUTICASONE FUROATE
     Indication: HYPERSENSITIVITY
     Dosage: UNK,(I JUST USE ONE SPRAY IN EACH NOSTRIL IN THE MORNING)
     Route: 045
     Dates: start: 2018

REACTIONS (5)
  - Nasal inflammation [Not Recovered/Not Resolved]
  - Incorrect dose administered [Unknown]
  - Nasal vestibulitis [Unknown]
  - Product use issue [Unknown]
  - Nasal discomfort [Not Recovered/Not Resolved]
